FAERS Safety Report 25400209 (Version 1)
Quarter: 2025Q2

REPORT INFORMATION
  Report Type: Report from Study
  Country: BR (occurrence: BR)
  Receive Date: 20250605
  Receipt Date: 20250605
  Transmission Date: 20250717
  Serious: Yes (Other)
  Sender: NOVARTIS
  Company Number: BR-002147023-NVSC2025BR076102

PATIENT
  Age: 51 Year
  Sex: Female
  Weight: 69 kg

DRUGS (12)
  1. KISQALI [Suspect]
     Active Substance: RIBOCICLIB SUCCINATE
     Indication: Breast cancer
     Route: 065
  2. KISQALI [Suspect]
     Active Substance: RIBOCICLIB SUCCINATE
     Indication: Metastases to lung
     Dosage: 3 DOSAGE FORMS (200 MG), LAST CYCLE (TOOK THE MEDICATION AROUND 02:00PM) QD (3 TABLETS EVERY MORNING
     Route: 048
     Dates: start: 20250425, end: 20250515
  3. KISQALI [Suspect]
     Active Substance: RIBOCICLIB SUCCINATE
     Indication: Breast cancer stage III
  4. LETROZOLE [Suspect]
     Active Substance: LETROZOLE
     Indication: Breast cancer
     Route: 065
     Dates: start: 20250425
  5. LETROZOLE [Suspect]
     Active Substance: LETROZOLE
     Indication: Metastases to lung
     Dosage: 1 DOSAGE FORM, QD (AT NIGHT)
     Route: 065
  6. LETROZOLE [Suspect]
     Active Substance: LETROZOLE
     Indication: Breast cancer stage III
  7. HYDROCHLOROTHIAZIDE [Concomitant]
     Active Substance: HYDROCHLOROTHIAZIDE
     Indication: Polyuria
     Dosage: 1 DOSAGE FORM (TABLET), QD (IN THE MORNING) (ABOUT 20 YEARS AGO)
     Route: 048
  8. METFORMIN HYDROCHLORIDE [Concomitant]
     Active Substance: METFORMIN HYDROCHLORIDE
     Indication: Type 2 diabetes mellitus
     Dosage: 1 DOSAGE FORM (TABLET), TID (1 TABLET IN THE MORNING, 1 TABLET AT LUNCH AND 1 AT NIGHT)
     Route: 048
     Dates: start: 20250529
  9. METFORMIN HYDROCHLORIDE [Concomitant]
     Active Substance: METFORMIN HYDROCHLORIDE
     Indication: Glucose tolerance impaired
     Dosage: 1 DOSAGE FORM (TABLET), BID (IN THE MORNING AND 1 AT NIGHT) (ABOUT 3 YEARS AGO)
     Route: 048
     Dates: end: 20250528
  10. METFORMIN HYDROCHLORIDE [Concomitant]
     Active Substance: METFORMIN HYDROCHLORIDE
     Dosage: 1 DOSAGE FORM (TABLET), QD (ABOUT 10 YEARS AGO)
     Route: 048
  11. GLICLAZIDE [Concomitant]
     Active Substance: GLICLAZIDE
     Indication: Type 2 diabetes mellitus
     Dosage: 1 DOSAGE FORM (TABLET), BID (1 TABLET IN THE MORNING AND 1 AT NIGHT) (3 YEARS AGO)
     Route: 048
  12. ROSUVASTATIN [Concomitant]
     Active Substance: ROSUVASTATIN
     Indication: Blood cholesterol increased
     Dosage: 1 DOSAGE FORM (TABLET), QD (AT NIGHT) (10 YEARS AGO)
     Route: 048

REACTIONS (13)
  - Arrhythmia [Recovering/Resolving]
  - Diabetes mellitus [Unknown]
  - Diarrhoea [Recovered/Resolved]
  - Tachycardia [Recovering/Resolving]
  - Heart rate abnormal [Recovering/Resolving]
  - Pulmonary mass [Unknown]
  - Cough [Not Recovered/Not Resolved]
  - Tinnitus [Unknown]
  - Hypertension [Unknown]
  - Hypovitaminosis [Unknown]
  - Wheezing [Unknown]
  - Hypoglycaemia [Unknown]
  - Blood glucose abnormal [Unknown]

NARRATIVE: CASE EVENT DATE: 20250425
